FAERS Safety Report 5860599-5 (Version None)
Quarter: 2008Q3

REPORT INFORMATION
  Report Type: 
  Country: None (occurrence: None)
  Receive Date: 20080827
  Receipt Date: 20070917
  Transmission Date: 20090109
  Serious: No
  Sender: FDA-Public Use
  Company Number: US-ABBOTT-07P-163-0417147-00

PATIENT
  Sex: Female
  Weight: 74.91 kg

DRUGS (3)
  1. NIASPAN [Suspect]
     Indication: BLOOD CHOLESTEROL INCREASED
     Dosage: ORANGE
     Route: 048
     Dates: start: 20070901
  2. NIASPAN [Suspect]
     Dosage: WHITE
     Route: 048
     Dates: start: 20040101
  3. OLMESARTAN MEDOXOMIL [Concomitant]
     Indication: HYPERTENSION

REACTIONS (3)
  - DYSPHONIA [None]
  - PRURITUS [None]
  - SWELLING FACE [None]
